FAERS Safety Report 12688865 (Version 1)
Quarter: 2016Q3

REPORT INFORMATION
  Report Type: Spontaneous
  Country: US (occurrence: None)
  Receive Date: 20160825
  Receipt Date: 20160825
  Transmission Date: 20161109
  Serious: Yes (Life-Threatening, Hospitalization, Disabling)
  Sender: FDA-Public Use
  Company Number: None

PATIENT
  Age: 35 Year
  Sex: Male
  Weight: 68.04 kg

DRUGS (1)
  1. METHADONE, 15 MG ASCEND LABORATORIES LLC [Suspect]
     Active Substance: METHADONE HYDROCHLORIDE
     Indication: PAIN
     Dosage: 1 TEASPOON(S) IN THE MORNING TAKEN BY MOUTH
     Route: 048
     Dates: start: 20140513

REACTIONS (5)
  - Chest pain [None]
  - Paralysis [None]
  - Dyspnoea [None]
  - Seizure [None]
  - Hemiplegia [None]

NARRATIVE: CASE EVENT DATE: 20160802
